FAERS Safety Report 9198812 (Version 1)
Quarter: 2013Q1

REPORT INFORMATION
  Report Type: Spontaneous
  Country: US (occurrence: None)
  Receive Date: 20130327
  Receipt Date: 20130327
  Transmission Date: 20140127
  Serious: Yes (Hospitalization)
  Sender: FDA-Public Use
  Company Number: None

PATIENT
  Age: 61 Year
  Sex: Male
  Weight: 92.2 kg

DRUGS (2)
  1. ABT 888 [Suspect]
     Indication: HEPATIC CANCER METASTATIC
     Route: 048
     Dates: start: 20130227, end: 20130305
  2. TEMZOLOMIDE 315 MG ABBOTT [Suspect]
     Indication: HEPATIC CANCER METASTATIC
     Dosage: 315 MG QD  PO
     Route: 048
     Dates: start: 20130227, end: 20130303

REACTIONS (3)
  - Fatigue [None]
  - Asthenia [None]
  - Haematochezia [None]
